FAERS Safety Report 22140072 (Version 1)
Quarter: 2023Q1

REPORT INFORMATION
  Report Type: Spontaneous
  Country: US (occurrence: None)
  Receive Date: 20230324
  Receipt Date: 20230324
  Transmission Date: 20230417
  Serious: Yes (unspecified)
  Sender: FDA-Public Use
  Company Number: None

PATIENT
  Age: 3 Month
  Sex: Male
  Weight: 6.3 kg

DRUGS (1)
  1. AVEENO BABY DAILY MOISTURE [Suspect]
     Active Substance: DIMETHICONE
     Indication: Dry skin
     Dosage: DAILY TOPICAL?
     Route: 061

REACTIONS (3)
  - Urticaria [None]
  - Erythema [None]
  - Rash macular [None]

NARRATIVE: CASE EVENT DATE: 20230323
